FAERS Safety Report 21557427 (Version 3)
Quarter: 2024Q1

REPORT INFORMATION
  Report Type: Report from Study
  Country: RO (occurrence: RO)
  Receive Date: 20221105
  Receipt Date: 20240227
  Transmission Date: 20240410
  Serious: Yes (Other)
  Sender: FDA-Public Use
  Company Number: RO-CELLTRION INC.-2022RO017990

PATIENT

DRUGS (9)
  1. HERCEPTIN [Suspect]
     Active Substance: TRASTUZUMAB
     Indication: HER2 positive breast cancer
     Dosage: 600 MG , EVERY 3 WEEKS (MOST RECENT DOSE PRIOR TO THE EVENT: 04/APR/2019)
     Route: 042
     Dates: start: 20190404, end: 20200313
  2. TRASTUZUMAB [Suspect]
     Active Substance: TRASTUZUMAB
     Indication: HER2 positive breast cancer
     Dosage: 600 MILLIGRAM, EVERY 3 WEEKS/MOST RECENT DOSE PRIOR TO THE EVENT: 04/APR/2019
     Route: 042
     Dates: start: 20190404, end: 20200313
  3. PACLITAXEL [Suspect]
     Active Substance: PACLITAXEL
     Indication: HER2 positive breast cancer
     Dosage: 75 MILLIGRAM, 1/WEEK
     Route: 042
     Dates: start: 20210324, end: 20210707
  4. ANASTROZOLE [Suspect]
     Active Substance: ANASTROZOLE
     Indication: HER2 positive breast cancer
     Dosage: 1 MILLIGRAM, QD
     Route: 048
     Dates: start: 20191024, end: 20210322
  5. PERTUZUMAB [Suspect]
     Active Substance: PERTUZUMAB
     Indication: HER2 positive breast cancer
     Dosage: 420 MILLIGRAM, EVERY 3 WEEKS/MOST RECENT DOSE PRIOR TO THE EVENT: 04/APR/2019
     Route: 042
     Dates: start: 20190404, end: 20200731
  6. FULVESTRANT [Suspect]
     Active Substance: FULVESTRANT
     Indication: HER2 positive breast cancer
     Dosage: 500 MILLIGRAM, MONTHLY
     Route: 042
     Dates: start: 20210818
  7. ADO-TRASTUZUMAB EMTANSINE [Suspect]
     Active Substance: ADO-TRASTUZUMAB EMTANSINE
     Indication: HER2 positive breast cancer
     Dosage: 3.6 MILLIGRAM PER KILOGRAM, EVERY 3 WEEKS
     Route: 030
     Dates: start: 20211029
  8. DOCETAXEL [Suspect]
     Active Substance: DOCETAXEL\DOCETAXEL ANHYDROUS
     Indication: HER2 positive breast cancer
     Dosage: 75 MILLIGRAM PER SQUARE METRE, EVERY 3 WEEKS
     Route: 042
     Dates: start: 20190404, end: 20200731
  9. GOSERELIN [Suspect]
     Active Substance: GOSERELIN
     Indication: HER2 positive breast cancer
     Dosage: 3.6 MILLIGRAM, Q4WEEKS
     Route: 058
     Dates: start: 20190529

REACTIONS (2)
  - Hepatic cytolysis [Recovered/Resolved]
  - Overdose [Unknown]

NARRATIVE: CASE EVENT DATE: 20210324
